FAERS Safety Report 6079125-3 (Version None)
Quarter: 2009Q1

REPORT INFORMATION
  Report Type: 
  Country: None (occurrence: None)
  Receive Date: 20090216
  Receipt Date: 20090210
  Transmission Date: 20090719
  Serious: Yes (Hospitalization, Congenital Anomaly)
  Sender: FDA-Public Use
  Company Number: A0748055A

PATIENT
  Sex: Male

DRUGS (5)
  1. PAXIL [Suspect]
     Indication: DEPRESSION
     Dates: start: 20000801, end: 20010801
  2. PAXIL CR [Suspect]
     Indication: DEPRESSION
     Dates: start: 20000801, end: 20011201
  3. PAROXETINE HCL [Suspect]
     Indication: DEPRESSION
     Dates: start: 20000801, end: 20011201
  4. VITAMIN AND MINERAL PRENATAL SUPPLEMENT W/ FOLIC ACID CAP [Concomitant]
  5. IBUPROFEN [Concomitant]

REACTIONS (3)
  - DRUG EXPOSURE DURING PREGNANCY [None]
  - MULTIPLE CONGENITAL ABNORMALITIES [None]
  - TRACHEOMALACIA [None]
